FAERS Safety Report 9425569 (Version 1)
Quarter: 2013Q3

REPORT INFORMATION
  Report Type: Spontaneous
  Country: US (occurrence: US)
  Receive Date: 20130729
  Receipt Date: 20130729
  Transmission Date: 20140515
  Serious: No
  Sender: FDA-Public Use
  Company Number: US-MYLANLABS-2012S1026185

PATIENT
  Sex: Female
  Weight: 49.9 kg

DRUGS (4)
  1. LEVOTHYROXINE SODIUM TABLETS, USP [Suspect]
     Indication: THYROID DISORDER
     Route: 048
     Dates: start: 2012, end: 2012
  2. VERAPAMIL [Concomitant]
     Indication: MIGRAINE
     Route: 048
  3. DEXILANT [Concomitant]
     Route: 048
  4. ESTRADIOL [Concomitant]
     Route: 048

REACTIONS (2)
  - Diarrhoea [Recovered/Resolved]
  - Flatulence [Recovered/Resolved]
